FAERS Safety Report 8972252 (Version 1)
Quarter: 2012Q4

REPORT INFORMATION
  Report Type: 
  Country: GB (occurrence: GB)
  Receive Date: 20121218
  Receipt Date: 20121218
  Transmission Date: 20130627
  Serious: Yes (Other)
  Sender: FDA-Public Use
  Company Number: GB-GENZYME-CERZ-1002735

PATIENT
  Sex: Female

DRUGS (1)
  1. CEREZYME [Suspect]
     Indication: GAUCHER^S DISEASE
     Dosage: 1200 U, q2w
     Route: 042
     Dates: start: 1998

REACTIONS (3)
  - Clavicle fracture [Not Recovered/Not Resolved]
  - Fall [Not Recovered/Not Resolved]
  - Spinal column injury [Not Recovered/Not Resolved]
